FAERS Safety Report 6755584-5 (Version None)
Quarter: 2010Q2

REPORT INFORMATION
  Report Type: 
  Country: None (occurrence: None)
  Receive Date: 20100604
  Receipt Date: 20100525
  Transmission Date: 20101027
  Serious: Yes (Other)
  Sender: FDA-Public Use
  Company Number: PHHY2010US34815

PATIENT
  Age: 70 Year
  Sex: Male

DRUGS (1)
  1. RECLAST [Suspect]
     Dosage: 5 MG

REACTIONS (1)
  - OSTEONECROSIS OF JAW [None]
